FAERS Safety Report 15329248 (Version 1)
Quarter: 2018Q3

REPORT INFORMATION
  Report Type: Spontaneous
  Country: US (occurrence: US)
  Receive Date: 20180829
  Receipt Date: 20180829
  Transmission Date: 20181010
  Serious: Yes (Other)
  Sender: FDA-Public Use
  Company Number: US-HIKMA PHARMACEUTICALS USA INC.-US-H14001-18-07082

PATIENT
  Age: 37 Year
  Sex: Female

DRUGS (3)
  1. CALCIUM CARBONATE. [Suspect]
     Active Substance: CALCIUM CARBONATE
     Indication: HYPOCALCAEMIA
     Route: 065
  2. CALCITRIOL. [Suspect]
     Active Substance: CALCITRIOL
     Route: 065
  3. CALCITRIOL. [Suspect]
     Active Substance: CALCITRIOL
     Indication: HYPOCALCAEMIA
     Route: 065

REACTIONS (1)
  - Nephrolithiasis [Unknown]
